FAERS Safety Report 7836647 (Version 4)
Quarter: 2013Q1

REPORT INFORMATION
  Report Type: Spontaneous
  Country: US (occurrence: US)
  Receive Date: 20110302
  Receipt Date: 20130208
  Transmission Date: 20140127
  Serious: No
  Sender: FDA-Public Use
  Company Number: US-BAYER-2011-016809

PATIENT
  Age: 27 Year
  Sex: Female
  Weight: 115.19 kg

DRUGS (1)
  1. MIRENA [Suspect]
     Indication: CONTRACEPTION
     Dosage: 20 MCG/24HR, CONT
     Route: 015
     Dates: start: 20090831

REACTIONS (6)
  - Pregnancy with contraceptive device [Recovered/Resolved]
  - Genital haemorrhage [None]
  - Fatigue [Recovered/Resolved]
  - Breast tenderness [Recovered/Resolved]
  - Device expulsion [None]
  - Drug ineffective [None]
